FAERS Safety Report 5595999-4 (Version None)
Quarter: 2008Q1

REPORT INFORMATION
  Report Type: 
  Country: None (occurrence: None)
  Receive Date: 20080118
  Receipt Date: 20080107
  Transmission Date: 20080703
  Serious: Yes (Hospitalization, Other)
  Sender: FDA-Public Use
  Company Number: US-AVENTIS-200810136US

PATIENT
  Age: 52 Year
  Sex: Female

DRUGS (14)
  1. DOLASETRON MESILATE [Suspect]
     Route: 042
  2. LOSARTAN POTASSIUM AND HYDROCHLOROTHIAZIDE [Concomitant]
     Indication: HYPERTENSION
     Dosage: DOSE: UNK
  3. METHIMAZOLE [Concomitant]
  4. BETA BLOCKING AGENTS [Concomitant]
     Dosage: DOSE: UNK
  5. PROPOFOL [Concomitant]
     Dosage: DOSE: UNK
  6. FENTANYL [Concomitant]
     Dosage: DOSE: UNK
  7. VECURONIUM BROMIDE [Concomitant]
     Dosage: DOSE: UNK
  8. METOPROLOL TARTRATE [Concomitant]
     Dosage: DOSE: UNK
     Route: 042
  9. EPHEDRINE [Concomitant]
     Indication: HYPOTENSION
     Dosage: DOSE: UNK
     Route: 042
  10. PHENYLEPHRINE [Concomitant]
     Indication: HYPOTENSION
     Dosage: DOSE: UNK
     Route: 042
  11. VASOPRESSIN [Concomitant]
     Indication: HYPOTENSION
     Dosage: DOSE: LOW DOSE INFUSION
     Route: 042
  12. MANNITOL [Concomitant]
     Dosage: DOSE: UNK
     Route: 042
  13. ISOFLURANE [Concomitant]
     Dosage: DOSE: UNK
  14. SUFENTANIL CITRATE [Concomitant]
     Dosage: DOSE: INFUSION
     Route: 042

REACTIONS (6)
  - APNOEA [None]
  - COMA [None]
  - ELECTROCARDIOGRAM QT PROLONGED [None]
  - HAEMODYNAMIC INSTABILITY [None]
  - TORSADE DE POINTES [None]
  - VENTRICULAR FIBRILLATION [None]
